FAERS Safety Report 18430920 (Version 2)
Quarter: 2021Q1

REPORT INFORMATION
  Report Type: Other
  Country: US (occurrence: US)
  Receive Date: 20201027
  Receipt Date: 20210122
  Transmission Date: 20210419
  Serious: No
  Sender: FDA-Public Use
  Company Number: US-AMAG PHARMACEUTICALS, INC.-AMAG202003551

PATIENT
  Age: 24 Year
  Sex: Female

DRUGS (4)
  1. MAKENA [Suspect]
     Active Substance: HYDROXYPROGESTERONE CAPROATE
     Indication: PREMATURE DELIVERY
     Dosage: 250 MG/ML, WEEKLY
     Route: 058
     Dates: start: 20200929
  2. PRENATAL VITAMIN [Concomitant]
     Active Substance: VITAMINS
  3. VITAMIN D [Concomitant]
     Active Substance: VITAMIN D NOS
  4. IRON SUPPLEMENT [Concomitant]
     Active Substance: IRON

REACTIONS (6)
  - Injection site erythema [Unknown]
  - Cervix cerclage procedure [Unknown]
  - Injection site hypersensitivity [Unknown]
  - Injection site mass [Unknown]
  - Injection site swelling [Unknown]
  - Hypersensitivity [Unknown]

NARRATIVE: CASE EVENT DATE: 20201001
